FAERS Safety Report 17678790 (Version 1)
Quarter: 2020Q2

REPORT INFORMATION
  Report Type: Spontaneous
  Country: CA (occurrence: CA)
  Receive Date: 20200417
  Receipt Date: 20200417
  Transmission Date: 20200714
  Serious: Yes (Death, Other)
  Sender: FDA-Public Use
  Company Number: CA-009507513-1810CAN000331

PATIENT

DRUGS (3)
  1. NIVOLUMAB [Suspect]
     Active Substance: NIVOLUMAB
     Indication: NON-SMALL CELL LUNG CANCER METASTATIC
     Dosage: DOSAGE FORM: SOLUTION INTRAVENOUS
     Route: 065
  2. ATEZOLIZUMAB. [Suspect]
     Active Substance: ATEZOLIZUMAB
     Indication: NON-SMALL CELL LUNG CANCER METASTATIC
     Dosage: ROUTE: INTRAVENOUS DRIP
     Route: 041
  3. KEYTRUDA [Suspect]
     Active Substance: PEMBROLIZUMAB
     Indication: NON-SMALL CELL LUNG CANCER METASTATIC
     Dosage: 2MG/KG BODYWEIGHT EVERY 3 WEEKS
     Route: 065

REACTIONS (5)
  - Colitis [Fatal]
  - Nausea [Unknown]
  - Hepatitis [Fatal]
  - Pneumonitis [Fatal]
  - Immune-mediated adverse reaction [Unknown]
